FAERS Safety Report 9004870 (Version 1)
Quarter: 2012Q4

REPORT INFORMATION
  Report Type: Spontaneous
  Country: US (occurrence: None)
  Receive Date: 20121226
  Receipt Date: 20121226
  Transmission Date: 20130627
  Serious: Yes (Other)
  Sender: FDA-Public Use
  Company Number: 201212000185

PATIENT

DRUGS (1)
  1. INOMAX (NITRIC OXIDE) [Suspect]
     Dosage: continuous, PPM
     Route: 055

REACTIONS (1)
  - Oxygen saturation decreased [None]
